FAERS Safety Report 6101437-5 (Version None)
Quarter: 2009Q1

REPORT INFORMATION
  Report Type: 
  Country: None (occurrence: None)
  Receive Date: 20090304
  Receipt Date: 20010510
  Transmission Date: 20090719
  Serious: No
  Sender: FDA-Public Use
  Company Number: US-ABBOTT-08P-163-0457448-00

PATIENT
  Age: 22 Year
  Sex: Male

DRUGS (1)
  1. VALPROATE SODIUM [Suspect]
     Indication: COMPLEX PARTIAL SEIZURES
     Dosage: 1250 MG

REACTIONS (1)
  - ALOPECIA [None]
